FAERS Safety Report 18655355 (Version 7)
Quarter: 2021Q1

REPORT INFORMATION
  Report Type: Report from Study
  Country: US (occurrence: US)
  Receive Date: 20201223
  Receipt Date: 20210304
  Transmission Date: 20210419
  Serious: Yes (Hospitalization, Other)
  Sender: FDA-Public Use
  Company Number: US-JNJFOC-20201123040

PATIENT
  Age: 23 Year
  Sex: Female
  Weight: 59.02 kg

DRUGS (13)
  1. EPOPROSTENOL SODIUM. [Suspect]
     Active Substance: EPOPROSTENOL SODIUM
     Indication: PULMONARY ARTERIAL HYPERTENSION
     Dosage: 3.14 NG/KG/MIN
     Route: 042
     Dates: start: 202011, end: 202011
  2. SELEXIPAG [Suspect]
     Active Substance: SELEXIPAG
     Indication: PULMONARY ARTERIAL HYPERTENSION
     Route: 048
  3. EPOPROSTENOL SODIUM. [Suspect]
     Active Substance: EPOPROSTENOL SODIUM
     Route: 042
  4. ADCIRCA [Concomitant]
     Active Substance: TADALAFIL
  5. ADEMPAS [Suspect]
     Active Substance: RIOCIGUAT
  6. MACITENTAN [Suspect]
     Active Substance: MACITENTAN
     Indication: PULMONARY ARTERIAL HYPERTENSION
     Route: 048
     Dates: start: 20201117, end: 20201209
  7. ELIQUIS [Concomitant]
     Active Substance: APIXABAN
  8. EPOPROSTENOL SODIUM. [Suspect]
     Active Substance: EPOPROSTENOL SODIUM
     Route: 042
  9. MACITENTAN [Suspect]
     Active Substance: MACITENTAN
     Route: 048
  10. SELEXIPAG [Suspect]
     Active Substance: SELEXIPAG
     Route: 048
     Dates: end: 202011
  11. EPOPROSTENOL SODIUM. [Suspect]
     Active Substance: EPOPROSTENOL SODIUM
     Dosage: 3.56 NG/KG/MIN
     Route: 042
     Dates: start: 202011
  12. EPOPROSTENOL SODIUM. [Suspect]
     Active Substance: EPOPROSTENOL SODIUM
     Route: 042
  13. LETAIRIS [Concomitant]
     Active Substance: AMBRISENTAN

REACTIONS (16)
  - Lung transplant [Unknown]
  - Chest pain [Unknown]
  - Headache [Unknown]
  - Syncope [Unknown]
  - Pulmonary hypertension [Unknown]
  - Blood iron decreased [Unknown]
  - Vomiting [Unknown]
  - Catheter site irritation [Unknown]
  - Application site rash [Unknown]
  - Catheter site rash [Unknown]
  - Application site pruritus [Unknown]
  - Oedema [Unknown]
  - Walking distance test abnormal [Unknown]
  - Pain in jaw [Unknown]
  - Loss of consciousness [Unknown]
  - Nausea [Unknown]

NARRATIVE: CASE EVENT DATE: 2020
